FAERS Safety Report 9156431 (Version 1)
Quarter: 2013Q1

REPORT INFORMATION
  Report Type: Spontaneous
  Country: KR (occurrence: None)
  Receive Date: 20130208
  Receipt Date: 20130208
  Transmission Date: 20140127
  Serious: Yes (Hospitalization, Other)
  Sender: FDA-Public Use
  Company Number: 2011015999

PATIENT
  Age: 61 Year
  Sex: Female
  Weight: 43 kg

DRUGS (9)
  1. STUDY DRUG [Suspect]
     Route: 048
     Dates: start: 20081001, end: 20110113
  2. RIFAMPICIN [Suspect]
     Dosage: AC
     Dates: start: 20110120, end: 20120730
  3. STREPTOMYCIN [Suspect]
     Dates: start: 20110209, end: 20120730
  4. LEVOFLOXACIN (LEVOFLOXACIN) [Suspect]
     Route: 042
     Dates: start: 20110120, end: 20120730
  5. ETHAMBUTOL [Suspect]
     Dates: start: 20110120, end: 20120730
  6. ISONIAZID [Suspect]
     Dates: start: 20110120, end: 20120730
  7. PYRAZINAMIDE [Suspect]
     Dates: start: 20110120, end: 20120730
  8. OMEPRAZOLE (OMEPRAZOLE) [Concomitant]
  9. CONCOR (BISOPROLOL FUMARATE) [Concomitant]

REACTIONS (5)
  - Tuberculosis of central nervous system [None]
  - Bone tuberculosis [None]
  - Disseminated tuberculosis [None]
  - Hepatotoxicity [None]
  - Drug reaction with eosinophilia and systemic symptoms [None]
